FAERS Safety Report 23110155 (Version 1)
Quarter: 2023Q4

REPORT INFORMATION
  Report Type: Spontaneous
  Country: US (occurrence: None)
  Receive Date: 20231024
  Receipt Date: 20231024
  Transmission Date: 20240109
  Serious: Yes (Hospitalization)
  Sender: FDA-Public Use
  Company Number: None

PATIENT
  Age: 43 Year
  Sex: Male
  Weight: 97.9 kg

DRUGS (1)
  1. LORAZEPAM [Suspect]
     Active Substance: LORAZEPAM
     Dates: start: 20220221, end: 20220222

REACTIONS (4)
  - Hallucination [None]
  - Respiratory depression [None]
  - Mental status changes [None]
  - Respiratory failure [None]

NARRATIVE: CASE EVENT DATE: 20220222
